FAERS Safety Report 10334754 (Version 1)
Quarter: 2014Q3

REPORT INFORMATION
  Report Type: Spontaneous
  Country: US (occurrence: None)
  Receive Date: 20140722
  Receipt Date: 20140722
  Transmission Date: 20150326
  Serious: Yes (Life-Threatening, Disabling, Other)
  Sender: FDA-Public Use
  Company Number: None

PATIENT
  Age: 45 Year
  Sex: Male
  Weight: 95.26 kg

DRUGS (1)
  1. THERA ZINC ELDERBERRY LOZENGES [Suspect]
     Active Substance: DIETARY SUPPLEMENT
     Indication: INFLUENZA LIKE ILLNESS
     Dosage: 2 FIRST DOSE, ONE AFTER 6 HOUR?1 EVERY TWO HOURS?TAKEN BY MOUTH
     Route: 048
     Dates: start: 20140319, end: 20140319

REACTIONS (8)
  - Muscle spasms [None]
  - Musculoskeletal disorder [None]
  - Petechiae [None]
  - Multi-organ disorder [None]
  - Eye haemorrhage [None]
  - Toxicity to various agents [None]
  - Cerebral haemorrhage [None]
  - Haemorrhage [None]

NARRATIVE: CASE EVENT DATE: 20140319
